FAERS Safety Report 6049352-X (Version None)
Quarter: 2009Q1

REPORT INFORMATION
  Report Type: 
  Country: None (occurrence: None)
  Receive Date: 20090123
  Receipt Date: 20090113
  Transmission Date: 20090719
  Serious: Yes (Life-Threatening, Hospitalization, Other)
  Sender: FDA-Public Use
  Company Number: FR-PFIZER INC-2008101061

PATIENT

DRUGS (22)
  1. TAHOR [Suspect]
     Indication: ACUTE CORONARY SYNDROME
     Dosage: 80 MG, 1X/DAY
     Route: 048
     Dates: start: 20080301, end: 20081123
  2. TAHOR [Interacting]
     Indication: MYOCARDIAL INFARCTION
  3. FUCIDINE CAP [Interacting]
     Indication: DIABETIC FOOT INFECTION
     Dosage: 500 MG, 3X/DAY
     Dates: start: 20081001, end: 20081123
  4. FUCIDINE CAP [Interacting]
     Indication: OSTEITIS
  5. PLAVIX [Concomitant]
     Dosage: 75 UNK, UNK
  6. KARDEGIC [Concomitant]
  7. METOPROLOL [Concomitant]
     Dosage: UNK
  8. PANTOPRAZOLE [Concomitant]
     Dosage: 20 MG, 1X/DAY
  9. SPECIAFOLDINE [Concomitant]
  10. COVERSYL [Concomitant]
     Dosage: UNK MG, UNK
  11. METHOTREXATE [Concomitant]
  12. ADANCOR [Concomitant]
     Dosage: 20 MG, 2X/DAY
  13. CORTANCYL [Concomitant]
     Dosage: 10 MG, 1X/DAY
  14. VASTAREL [Concomitant]
     Dosage: 35 MG, 2X/DAY
  15. ALPRAZOLAM [Concomitant]
     Dosage: 0.25 MG, 2X/DAY
  16. DIALGIREX [Concomitant]
  17. FORLAX [Concomitant]
  18. HUMIRA [Concomitant]
     Dosage: UNK
  19. BACTRIM DS [Concomitant]
     Dosage: UNK
     Dates: start: 20081025, end: 20081128
  20. DIFFU K [Concomitant]
  21. LANTUS [Concomitant]
     Dosage: 24 UNK, UNK
  22. HUMALOG [Concomitant]

REACTIONS (10)
  - DIABETIC FOOT INFECTION [None]
  - DRUG INTERACTION [None]
  - ERYTHEMA [None]
  - FLATULENCE [None]
  - HYPERSENSITIVITY [None]
  - LUNG DISORDER [None]
  - MYOCARDIAL INFARCTION [None]
  - POLYMYOSITIS [None]
  - REFLEXES ABNORMAL [None]
  - RHABDOMYOLYSIS [None]
